FAERS Safety Report 10524351 (Version 1)
Quarter: 2014Q4

REPORT INFORMATION
  Report Type: Spontaneous
  Country: NO (occurrence: NO)
  Receive Date: 20141017
  Receipt Date: 20141017
  Transmission Date: 20150528
  Serious: Yes (Life-Threatening, Hospitalization)
  Sender: FDA-Public Use
  Company Number: PHHY2014NO130487

PATIENT
  Age: 64 Year
  Sex: Male

DRUGS (3)
  1. TRAMADOL [Interacting]
     Active Substance: TRAMADOL
     Indication: PAIN
     Dosage: 1 DF, PRN
     Route: 048
     Dates: end: 20140917
  2. CIPROXIN /DEN/ [Interacting]
     Active Substance: CIPROFLOXACIN
     Indication: BRONCHITIS
     Dosage: UNK UKN, UNK
     Route: 048
     Dates: end: 20140913
  3. EXFORGE HCT [Suspect]
     Active Substance: AMLODIPINE BESYLATE\HYDROCHLOROTHIAZIDE\VALSARTAN
     Indication: HYPERTENSION
     Dosage: UNK UKN, UNK
     Route: 048
     Dates: end: 20140917

REACTIONS (9)
  - Listless [None]
  - Loss of consciousness [None]
  - Weight increased [None]
  - Respiratory arrest [None]
  - Hyponatraemia [None]
  - Oedema peripheral [Unknown]
  - Cardiac arrest [Unknown]
  - Hyponatraemia [Unknown]
  - Lethargy [None]

NARRATIVE: CASE EVENT DATE: 201409
